FAERS Safety Report 21754569 (Version 1)
Quarter: 2022Q4

REPORT INFORMATION
  Report Type: Spontaneous
  Country: US (occurrence: US)
  Receive Date: 20221220
  Receipt Date: 20221220
  Transmission Date: 20230113
  Serious: No
  Sender: FDA-Public Use
  Company Number: US-009507513-2212USA003033

PATIENT

DRUGS (1)
  1. BELSOMRA [Suspect]
     Active Substance: SUVOREXANT
     Dosage: 5MG AS NEEDED FOR SLEEP
     Route: 048

REACTIONS (3)
  - Confusional state [Unknown]
  - Product blister packaging issue [Unknown]
  - Product packaging difficult to open [Unknown]
